FAERS Safety Report 5491276-0 (Version None)
Quarter: 2007Q4

REPORT INFORMATION
  Report Type: 
  Country: None (occurrence: None)
  Receive Date: 20071017
  Receipt Date: 20071003
  Transmission Date: 20080405
  Serious: Yes (Disabling)
  Sender: FDA-Public Use
  Company Number: 071002-0000973

PATIENT
  Age: 3 Year
  Sex: Female

DRUGS (3)
  1. DACTINOMYCIN [Suspect]
     Indication: RHABDOMYOSARCOMA
     Dosage: ; IV
     Route: 042
     Dates: start: 20021001, end: 20040101
  2. ONCOVIN [Suspect]
     Indication: RHABDOMYOSARCOMA
     Dosage: ; IV
     Route: 042
     Dates: start: 20021001, end: 20040101
  3. CYCLOPHOSPHAMIDE [Suspect]
     Indication: RHABDOMYOSARCOMA
     Dosage: ; IV
     Route: 042
     Dates: start: 20021001, end: 20040101

REACTIONS (7)
  - DENTAL CARIES [None]
  - DENTAL PULP DISORDER [None]
  - HYPOAESTHESIA FACIAL [None]
  - LOOSE TOOTH [None]
  - STRABISMUS [None]
  - TOOTH DISCOLOURATION [None]
  - TOOTH HYPOPLASIA [None]
